FAERS Safety Report 23951139 (Version 1)
Quarter: 2024Q2

REPORT INFORMATION
  Report Type: Report from Study
  Country: US (occurrence: US)
  Receive Date: 20240607
  Receipt Date: 20240607
  Transmission Date: 20240716
  Serious: No
  Sender: FDA-Public Use
  Company Number: US-SPRINGWORKS THERAPEUTICS-SW-001398

PATIENT
  Age: 60 Year
  Sex: Female
  Weight: 56.689 kg

DRUGS (3)
  1. NIROGACESTAT [Suspect]
     Active Substance: NIROGACESTAT
     Indication: Product used for unknown indication
     Dosage: 50 MILLIGRAM
     Route: 048
  2. NIROGACESTAT [Suspect]
     Active Substance: NIROGACESTAT
     Dosage: 150 MILLIGRAM, BID
     Route: 065
  3. NIROGACESTAT [Suspect]
     Active Substance: NIROGACESTAT
     Dosage: 100 MILLIGRAM, BID
     Route: 048
     Dates: start: 20240217

REACTIONS (5)
  - Dehydration [Unknown]
  - Illness [Unknown]
  - Contusion [Unknown]
  - Dyspnoea [Unknown]
  - Diarrhoea [Unknown]

NARRATIVE: CASE EVENT DATE: 20240421
